FAERS Safety Report 17208250 (Version 2)
Quarter: 2020Q1

REPORT INFORMATION
  Report Type: Report from Study
  Country: TW (occurrence: TW)
  Receive Date: 20191227
  Receipt Date: 20200111
  Transmission Date: 20200409
  Serious: Yes (Hospitalization, Other)
  Sender: FDA-Public Use
  Company Number: TW-TAKEDA-2019TUS072857

PATIENT
  Age: 37 Year
  Sex: Male

DRUGS (1)
  1. VEDOLIZUMAB [Suspect]
     Active Substance: VEDOLIZUMAB
     Indication: CROHN^S DISEASE
     Dosage: 300 MILLIGRAM
     Route: 042
     Dates: start: 20191121

REACTIONS (6)
  - Urinary tract infection enterococcal [Recovered/Resolved]
  - Peritonitis bacterial [Unknown]
  - Bladder diverticulum [Unknown]
  - Pneumonia [Recovered/Resolved]
  - Hepatic enzyme increased [Unknown]
  - Crohn^s disease [Recovered/Resolved]

NARRATIVE: CASE EVENT DATE: 20191218
